APPROVED DRUG PRODUCT: LEVOFLOXACIN
Active Ingredient: LEVOFLOXACIN
Strength: 1.5%
Dosage Form/Route: SOLUTION/DROPS;OPHTHALMIC
Application: A205600 | Product #001
Applicant: MICRO LABS LTD INDIA
Approved: Feb 27, 2019 | RLD: No | RS: No | Type: RX